FAERS Safety Report 10015022 (Version 5)
Quarter: 2017Q1

REPORT INFORMATION
  Report Type: Report from Study
  Country: US (occurrence: US)
  Receive Date: 20140317
  Receipt Date: 20170213
  Transmission Date: 20170428
  Serious: Yes (Hospitalization)
  Sender: FDA-Public Use
  Company Number: US-ACTELION-A-NJ2014-95959

PATIENT
  Age: 77 Year
  Sex: Male

DRUGS (12)
  1. LISINOPRIL. [Concomitant]
     Active Substance: LISINOPRIL
  2. TIMOLOL. [Concomitant]
     Active Substance: TIMOLOL
  3. OXYCODONE [Concomitant]
     Active Substance: OXYCODONE
  4. COUMADIN [Concomitant]
     Active Substance: WARFARIN SODIUM
  5. DETROL [Concomitant]
     Active Substance: TOLTERODINE TARTRATE
  6. VITAMIN D [Concomitant]
     Active Substance: CHOLECALCIFEROL
  7. METHIMAZOLE. [Concomitant]
     Active Substance: METHIMAZOLE
  8. TRACLEER [Suspect]
     Active Substance: BOSENTAN
     Indication: PULMONARY ARTERIAL HYPERTENSION
     Dosage: 125 MG, BID
     Route: 048
     Dates: start: 20120110
  9. GABAPENTIN. [Concomitant]
     Active Substance: GABAPENTIN
  10. FUROSEMIDE. [Concomitant]
     Active Substance: FUROSEMIDE
  11. AMLODIPINE [Concomitant]
     Active Substance: AMLODIPINE BESYLATE
  12. NEXIUM [Concomitant]
     Active Substance: ESOMEPRAZOLE MAGNESIUM

REACTIONS (10)
  - Back pain [Not Recovered/Not Resolved]
  - Fall [Not Recovered/Not Resolved]
  - Arthralgia [Not Recovered/Not Resolved]
  - Activities of daily living impaired [Recovered/Resolved]
  - International normalised ratio increased [Unknown]
  - Infection [Recovering/Resolving]
  - Pain [Recovered/Resolved]
  - Asthenia [Not Recovered/Not Resolved]
  - Tremor [Unknown]
  - Arthritis [Not Recovered/Not Resolved]
